FAERS Safety Report 9457843 (Version 3)
Quarter: 2013Q3

REPORT INFORMATION
  Report Type: Spontaneous
  Country: FR (occurrence: FR)
  Receive Date: 20130814
  Receipt Date: 20130910
  Transmission Date: 20140515
  Serious: Yes (Hospitalization)
  Sender: FDA-Public Use
  Company Number: FR-MERCK-1308FRA003068

PATIENT
  Age: 88 Year
  Sex: Male
  Weight: 58 kg

DRUGS (8)
  1. JANUVIA [Suspect]
     Indication: TYPE 2 DIABETES MELLITUS
     Dosage: 100 MG,QD
     Route: 048
     Dates: start: 2012, end: 20130712
  2. JANUVIA [Suspect]
     Dosage: UNK
  3. DAONIL [Suspect]
     Indication: TYPE 2 DIABETES MELLITUS
     Dosage: 2.5 MG, QD
     Route: 048
     Dates: start: 2012, end: 20130712
  4. AMLOR [Concomitant]
  5. KARDEGIC [Concomitant]
  6. EUPANTOL [Concomitant]
  7. HYDERGINE [Concomitant]
  8. TRIMETAZIDINE [Concomitant]

REACTIONS (2)
  - Confusional state [Recovered/Resolved]
  - Hypoglycaemia [Recovered/Resolved]
